FAERS Safety Report 5205967-X (Version None)
Quarter: 2006Q4

REPORT INFORMATION
  Report Type: 
  Country: None (occurrence: None)
  Receive Date: 20061027
  Receipt Date: 20060706
  Transmission Date: 20070319
  Serious: No
  Sender: FDA-Public Use
  Company Number: 200615979US

PATIENT
  Age: 52 Year
  Sex: Female

DRUGS (5)
  1. KETEK [Suspect]
     Indication: SINUSITIS
     Dosage: 400 MG BID PO
     Route: 048
     Dates: start: 20060620, end: 20060627
  2. LEVOTHYROXINE SODIUM (LEVOXYL) [Concomitant]
  3. MONTELUKAST SODIUM [Concomitant]
  4. PROGESTERONE [Concomitant]
  5. MOMETASONE FUROATE (NASONEX) [Concomitant]

REACTIONS (4)
  - DIZZINESS [None]
  - MUSCULAR WEAKNESS [None]
  - NAUSEA [None]
  - VOMITING [None]
